FAERS Safety Report 16364070 (Version 4)
Quarter: 2019Q3

REPORT INFORMATION
  Report Type: Spontaneous
  Country: JP (occurrence: JP)
  Receive Date: 20190528
  Receipt Date: 20190726
  Transmission Date: 20191004
  Serious: Yes (Death, Hospitalization)
  Sender: FDA-Public Use
  Company Number: JP-PFIZER INC-2019225886

PATIENT
  Age: 78 Year
  Sex: Female
  Weight: 33.3 kg

DRUGS (7)
  1. CADEX [IODINE] [Concomitant]
  2. LOXONIN [Concomitant]
     Active Substance: LOXOPROFEN SODIUM
  3. DAIPHEN [Concomitant]
     Active Substance: SULFAMETHOXAZOLE\TRIMETHOPRIM
  4. FULVESTRANT. [Concomitant]
     Active Substance: FULVESTRANT
     Indication: BREAST CANCER METASTATIC
     Dosage: 500 MG, DAILY
     Route: 030
     Dates: start: 20190517, end: 20190524
  5. MUCOSTA [Concomitant]
     Active Substance: REBAMIPIDE
  6. IBRANCE [Suspect]
     Active Substance: PALBOCICLIB
     Indication: BREAST CANCER METASTATIC
     Dosage: 100 MG, 1X/DAY
     Route: 048
     Dates: start: 20190517, end: 20190524
  7. FEBURIC [Concomitant]
     Active Substance: FEBUXOSTAT

REACTIONS (2)
  - Multiple organ dysfunction syndrome [Fatal]
  - Interstitial lung disease [Fatal]

NARRATIVE: CASE EVENT DATE: 20190524
